FAERS Safety Report 7337869-7 (Version None)
Quarter: 2011Q1

REPORT INFORMATION
  Report Type: 
  Country: None (occurrence: None)
  Receive Date: 20110303
  Receipt Date: 20110303
  Transmission Date: 20110831
  Serious: Yes (Death)
  Sender: FDA-Public Use
  Company Number: None

PATIENT
  Age: 46 Year
  Sex: Male
  Weight: 172.3669 kg

DRUGS (1)
  1. ADVAIR DISKUS 250/50 [Suspect]
     Indication: ASTHMA PROPHYLAXIS
     Dosage: 1 PUFF EVERY 12 HOURS PO
     Route: 048
     Dates: start: 20110128, end: 20110131

REACTIONS (6)
  - DYSPNOEA [None]
  - RESPIRATORY RATE INCREASED [None]
  - PALLOR [None]
  - FEELING ABNORMAL [None]
  - CARDIAC ARREST [None]
  - RESPIRATORY ARREST [None]
